FAERS Safety Report 10126306 (Version 1)
Quarter: 2014Q2

REPORT INFORMATION
  Report Type: Spontaneous
  Country: US (occurrence: US)
  Receive Date: 20140427
  Receipt Date: 20140427
  Transmission Date: 20141212
  Serious: Yes (Other)
  Sender: FDA-Public Use
  Company Number: US-BRISTOL-MYERS SQUIBB COMPANY-20643912

PATIENT
  Age: 86 Year
  Sex: Male
  Weight: 81.63 kg

DRUGS (22)
  1. WARFARIN SODIUM [Suspect]
  2. TYLENOL [Concomitant]
  3. AMIODARONE [Concomitant]
  4. VITAMIN C [Concomitant]
  5. BABY ASPIRIN [Concomitant]
  6. LIPITOR [Concomitant]
  7. CALCITRIOL [Concomitant]
  8. CALCIUM CARBONATE [Concomitant]
  9. VITAMIN D3 [Concomitant]
  10. CLOBETASOL [Concomitant]
  11. DOCUSATE [Concomitant]
  12. GENTAMICIN [Concomitant]
     Route: 061
  13. GLIMEPIRIDE [Concomitant]
  14. LEVOTHYROXINE [Concomitant]
  15. LISINOPRIL [Concomitant]
  16. MAGNESIUM OXIDE [Concomitant]
  17. MULTIVITAMIN [Concomitant]
  18. FISH OIL [Concomitant]
  19. PANTOPRAZOLE [Concomitant]
  20. MIRALAX [Concomitant]
  21. JANUVIA [Concomitant]
  22. TORSEMIDE [Concomitant]

REACTIONS (2)
  - Drug intolerance [Unknown]
  - International normalised ratio abnormal [Unknown]
